FAERS Safety Report 7378822-7 (Version None)
Quarter: 2011Q1

REPORT INFORMATION
  Report Type: 
  Country: None (occurrence: None)
  Receive Date: 20110328
  Receipt Date: 20110314
  Transmission Date: 20110831
  Serious: Yes (Other)
  Sender: FDA-Public Use
  Company Number: PHHY2011US19266

PATIENT
  Sex: Female

DRUGS (14)
  1. MAGNESIUM [Concomitant]
     Dosage: 30 MG EVERY EVENING
  2. CLONAZEPAM [Concomitant]
     Dosage: 0.25 MG, UNK
  3. TASIGNA [Suspect]
     Dosage: 200 MG, BID
     Route: 048
     Dates: start: 20101123
  4. TASIGNA [Suspect]
     Dosage: 400 MG, BID
     Route: 048
     Dates: start: 20100801
  5. TASIGNA [Suspect]
     Dosage: 400 MG DAILY
     Route: 048
     Dates: end: 20101027
  6. MULTI-VITAMINS [Concomitant]
     Dosage: 1 P.O Q DAY
     Route: 048
  7. CRANBERRY [Concomitant]
     Dosage: 1 TABLET ONCE DAILY
     Route: 048
  8. FLUOXETINE [Concomitant]
     Dosage: 20 MG, UNK
  9. TASIGNA [Suspect]
     Dosage: 400 MG DAILY
     Route: 048
     Dates: start: 20101104
  10. ESTRADIOL [Concomitant]
     Dosage: 1 MG EVERY OTHER EVENING
  11. VITAMIN D [Concomitant]
     Dosage: 1000 IU/ DROP 6 DROPS DAILY
  12. TASIGNA [Suspect]
     Indication: CHRONIC MYELOID LEUKAEMIA
     Dosage: 200 MG, BID
  13. ADVIL                              /00044201/ [Concomitant]
     Dosage: 2 TABLETS
     Route: 048
  14. PROBIOTICS (MICROORGANISMS W/PROBIOTIC ACTION) [Concomitant]
     Dosage: 10 BILLION CELL CAP, 1 IN EVENING

REACTIONS (19)
  - WEIGHT INCREASED [None]
  - HEADACHE [None]
  - FLUID RETENTION [None]
  - BLOOD CHOLESTEROL INCREASED [None]
  - LOWER RESPIRATORY TRACT INFECTION [None]
  - NASOPHARYNGITIS [None]
  - ELECTROCARDIOGRAM QT PROLONGED [None]
  - DRY SKIN [None]
  - HYPERBILIRUBINAEMIA [None]
  - OROPHARYNGEAL PAIN [None]
  - FLANK PAIN [None]
  - PRURITUS [None]
  - PAIN IN EXTREMITY [None]
  - MOOD SWINGS [None]
  - DIZZINESS [None]
  - PAIN [None]
  - NAUSEA [None]
  - OEDEMA [None]
  - HERPES VIRUS INFECTION [None]
